FAERS Safety Report 13452058 (Version 1)
Quarter: 2017Q2

REPORT INFORMATION
  Report Type: Spontaneous
  Country: DK (occurrence: DK)
  Receive Date: 20170418
  Receipt Date: 20170418
  Transmission Date: 20170830
  Serious: Yes (Life-Threatening, Hospitalization)
  Sender: FDA-Public Use
  Company Number: DK-ALKABELLO-2017AA001444

PATIENT
  Age: 45 Year
  Sex: Female

DRUGS (11)
  1. NASONEX [Concomitant]
     Active Substance: MOMETASONE FUROATE
     Indication: HYPERSENSITIVITY
  2. GRAZAX [Suspect]
     Active Substance: PHLEUM PRATENSE POLLEN
     Indication: SEASONAL ALLERGY
     Dosage: STYRKE: 75.000 SQ-T DOSE UNIT:75000 SQ
     Dates: start: 20170322, end: 20170403
  3. VENTOLINE [Concomitant]
     Active Substance: ALBUTEROL
     Indication: ASTHMA
  4. LEVOCABASTINE [Concomitant]
     Active Substance: LEVOCABASTINE
     Indication: HYPERSENSITIVITY
  5. OLOPATADINE. [Concomitant]
     Active Substance: OLOPATADINE
     Indication: HYPERSENSITIVITY
  6. ALENDRONATE SODIUM. [Concomitant]
     Active Substance: ALENDRONATE SODIUM
     Indication: OSTEOPOROSIS
  7. DESOGESTREL [Concomitant]
     Active Substance: DESOGESTREL
     Indication: CONTRACEPTION
  8. EMADINE [Concomitant]
     Active Substance: EMEDASTINE DIFUMARATE
     Indication: HYPERSENSITIVITY
  9. PANODIL [Concomitant]
     Active Substance: ACETAMINOPHEN
     Indication: PAIN
  10. FLUTICASONE. [Concomitant]
     Active Substance: FLUTICASONE
     Indication: HYPERSENSITIVITY
  11. LOMUDAL [Concomitant]
     Indication: HYPERSENSITIVITY

REACTIONS (9)
  - Muscular weakness [Recovered/Resolved]
  - Chest discomfort [Recovered/Resolved]
  - Anaphylactic reaction [Recovered/Resolved]
  - Dyspnoea [Recovered/Resolved]
  - Paraesthesia [Recovered/Resolved]
  - Urticaria [Recovered/Resolved]
  - Dysphonia [Recovered/Resolved]
  - Dizziness [Recovered/Resolved]
  - Palpitations [Recovered/Resolved]

NARRATIVE: CASE EVENT DATE: 20170403
